FAERS Safety Report 5751733-6 (Version None)
Quarter: 2008Q2

REPORT INFORMATION
  Report Type: 
  Country: None (occurrence: None)
  Receive Date: 20080529
  Receipt Date: 20080526
  Transmission Date: 20081010
  Serious: Yes (Hospitalization, Other)
  Sender: FDA-Public Use
  Company Number: GB-RANBAXY-2008RR-14258

PATIENT

DRUGS (5)
  1. FLUOXETINE [Suspect]
     Indication: DEPRESSION
     Dosage: 20 MG, QD
     Route: 065
  2. ALLOPURINOL [Concomitant]
     Dosage: 300 MG, QD
     Route: 065
  3. AMITRIPTYLINE HCL [Concomitant]
     Dosage: 10 MG, QD
     Route: 065
  4. FENTANYL-100 [Concomitant]
     Dosage: 50 UG, Q1H
     Route: 065
  5. SIMVASTATIN [Concomitant]
     Dosage: 20 MG, QD
     Route: 065

REACTIONS (10)
  - AGITATION [None]
  - CONFUSIONAL STATE [None]
  - DYSKINESIA [None]
  - DYSPHEMIA [None]
  - GAIT DISTURBANCE [None]
  - MUSCULOSKELETAL STIFFNESS [None]
  - SEROTONIN SYNDROME [None]
  - SPEECH DISORDER [None]
  - STATUS EPILEPTICUS [None]
  - TREMOR [None]
